FAERS Safety Report 9133049 (Version 1)
Quarter: 2013Q1

REPORT INFORMATION
  Report Type: Spontaneous
  Country: CA (occurrence: CA)
  Receive Date: 20130301
  Receipt Date: 20130301
  Transmission Date: 20140127
  Serious: Yes (Hospitalization)
  Sender: FDA-Public Use
  Company Number: CA-ROCHE-1196375

PATIENT
  Sex: Male
  Weight: 75 kg

DRUGS (9)
  1. CELLCEPT [Suspect]
     Indication: IMMUNOSUPPRESSION
     Route: 048
     Dates: start: 20121122, end: 20130131
  2. ADVAGRAF [Suspect]
     Indication: IMMUNOSUPPRESSION
     Route: 048
     Dates: start: 20121012, end: 20130131
  3. PREDNISONE [Concomitant]
     Indication: IMMUNOSUPPRESSION
     Route: 048
     Dates: start: 20120929
  4. ACTONEL [Concomitant]
     Indication: OSTEOPOROSIS PROPHYLAXIS
     Route: 065
     Dates: start: 20101230
  5. CALCIUM [Concomitant]
     Indication: OSTEOPOROSIS PROPHYLAXIS
     Route: 065
     Dates: start: 20101230
  6. MAGLUCATE [Concomitant]
     Indication: HYPOMAGNESAEMIA
     Route: 065
     Dates: start: 20120426
  7. ONE ALPHA [Concomitant]
     Indication: OSTEOPOROSIS PROPHYLAXIS
     Route: 065
     Dates: start: 20101230
  8. SEPTRA [Concomitant]
     Indication: INFECTION PROPHYLAXIS
     Route: 065
     Dates: start: 20120924
  9. PROGRAF [Concomitant]
     Route: 065
     Dates: start: 20130202

REACTIONS (1)
  - Enteritis [Recovered/Resolved]
